FAERS Safety Report 7277207-1 (Version None)
Quarter: 2011Q1

REPORT INFORMATION
  Report Type: 
  Country: None (occurrence: None)
  Receive Date: 20110202
  Receipt Date: 20110202
  Transmission Date: 20110831
  Serious: Yes (Hospitalization)
  Sender: FDA-Public Use
  Company Number: None

PATIENT
  Sex: Male
  Weight: 58.9676 kg

DRUGS (13)
  1. SUNITINIB MALATE [Suspect]
     Indication: OESOPHAGEAL CARCINOMA
     Dosage: 37.5 MG DAILY PO
     Route: 048
     Dates: start: 20101122, end: 20110102
  2. LEVOTHYROXINE SODIUM [Concomitant]
  3. GLIMEPIRIDE [Concomitant]
  4. TEMAZEPAM [Concomitant]
  5. HEPARIN [Concomitant]
  6. PROMETHAZINE [Concomitant]
  7. SODIUM CHLORIDE -NORMAL SALINE FLUSH- [Concomitant]
  8. PROTONIX [Concomitant]
  9. LORAZEPAM [Concomitant]
  10. SUNITINIB MALATE [Suspect]
  11. NORCO [Concomitant]
  12. PREVACID [Concomitant]
  13. NUTRITIONAL SUPPLEMENTS [Concomitant]

REACTIONS (2)
  - PNEUMONIA [None]
  - FATIGUE [None]
